FAERS Safety Report 15837537 (Version 2)
Quarter: 2019Q1

REPORT INFORMATION
  Report Type: Spontaneous
  Country: FR (occurrence: FR)
  Receive Date: 20190117
  Receipt Date: 20190219
  Transmission Date: 20190417
  Serious: Yes (Death, Hospitalization, Other)
  Sender: FDA-Public Use
  Company Number: FR-009507513-1901FRA005560

PATIENT
  Sex: Female

DRUGS (3)
  1. MERCILON [Suspect]
     Active Substance: DESOGESTREL\ETHINYL ESTRADIOL
     Indication: CONTRACEPTION
     Dosage: UNK
     Route: 048
     Dates: start: 200909
  2. HEPARIN [Suspect]
     Active Substance: HEPARIN SODIUM
     Indication: ANTICOAGULANT THERAPY
     Dosage: 38,000 UNITS /DAY
     Route: 065
     Dates: start: 20120329, end: 20120330
  3. HEPARIN [Suspect]
     Active Substance: HEPARIN SODIUM
     Dosage: 36,000 UNITS/DAY
     Route: 065
     Dates: start: 20120330

REACTIONS (5)
  - Death [Fatal]
  - Overdose [Unknown]
  - Meningorrhagia [Unknown]
  - Subdural haematoma [Unknown]
  - Cerebral venous thrombosis [Unknown]

NARRATIVE: CASE EVENT DATE: 201203
